FAERS Safety Report 6665249-6 (Version None)
Quarter: 2010Q2

REPORT INFORMATION
  Report Type: 
  Country: None (occurrence: None)
  Receive Date: 20100402
  Receipt Date: 20100325
  Transmission Date: 20101027
  Serious: Yes (Disabling)
  Sender: FDA-Public Use
  Company Number: GB-ASTRAZENECA-2010SE13213

PATIENT
  Age: 54 Year
  Sex: Female

DRUGS (4)
  1. ROSUVASTATIN [Suspect]
     Indication: HYPERCHOLESTEROLAEMIA
     Route: 048
     Dates: start: 20091221, end: 20100308
  2. HYPROMELLOSE [Concomitant]
     Indication: DRY EYE
     Route: 061
     Dates: start: 20080404
  3. LEVOTHYROXINE SODIUM [Concomitant]
     Indication: HYPOTHYROIDISM
     Route: 048
     Dates: start: 20070716
  4. SIMVASTATIN [Concomitant]
     Indication: HYPERCHOLESTEROLAEMIA
     Route: 065
     Dates: start: 20091210, end: 20091214

REACTIONS (2)
  - DEPRESSION [None]
  - MUSCULOSKELETAL STIFFNESS [None]
